FAERS Safety Report 21344385 (Version 3)
Quarter: 2022Q4

REPORT INFORMATION
  Report Type: Report from Study
  Country: ES (occurrence: ES)
  Receive Date: 20220916
  Receipt Date: 20221020
  Transmission Date: 20230113
  Serious: Yes (Hospitalization, Other)
  Sender: FDA-Public Use
  Company Number: ES-BRISTOL-MYERS SQUIBB COMPANY-2022-095890

PATIENT
  Age: 76 Year
  Sex: Female
  Weight: 101.1 kg

DRUGS (3)
  1. NIVOLUMAB [Suspect]
     Active Substance: NIVOLUMAB
     Indication: Sarcoma
     Route: 042
     Dates: start: 20220603, end: 20220603
  2. SUNITINIB MALATE [Suspect]
     Active Substance: SUNITINIB MALATE
     Indication: Sarcoma
     Route: 048
     Dates: start: 20220520, end: 20220602
  3. SUNITINIB MALATE [Suspect]
     Active Substance: SUNITINIB MALATE
     Route: 048
     Dates: start: 20220603, end: 20220609

REACTIONS (2)
  - Atrial fibrillation [Recovered/Resolved]
  - Cardiotoxicity [Unknown]

NARRATIVE: CASE EVENT DATE: 20220806
